FAERS Safety Report 9494632 (Version 2)
Quarter: 2013Q4

REPORT INFORMATION
  Report Type: Spontaneous
  Country: DE (occurrence: DE)
  Receive Date: 20130903
  Receipt Date: 20131106
  Transmission Date: 20140711
  Serious: Yes (Death, Life-Threatening, Hospitalization, Other)
  Sender: FDA-Public Use
  Company Number: DE-ELI_LILLY_AND_COMPANY-DE201308006860

PATIENT
  Age: 72 Year
  Sex: Male

DRUGS (14)
  1. ZYPREXA [Suspect]
     Indication: DEPRESSION
     Dosage: 10 MG, UNKNOWN
     Route: 048
     Dates: start: 20010129
  2. ZYPREXA [Suspect]
     Indication: PSYCHOTIC DISORDER
     Dosage: 10 MG, OTHER
     Route: 048
  3. ZYPREXA [Suspect]
     Indication: OBSESSIVE-COMPULSIVE DISORDER
  4. LAUBEEL [Suspect]
     Indication: SUICIDAL IDEATION
     Dosage: 2 MG, UNKNOWN
     Route: 048
     Dates: start: 20010129, end: 20010208
  5. LAUBEEL [Suspect]
     Indication: RESTLESSNESS
     Dosage: 1 DF, UNKNOWN
     Route: 065
  6. LAUBEEL [Suspect]
     Indication: ANXIETY
  7. NAC                                /00082801/ [Concomitant]
     Dosage: 600 MG, UNKNOWN
     Dates: end: 20010208
  8. DIGITOXIN [Concomitant]
     Dosage: 0.07 MG, UNKNOWN
     Route: 048
     Dates: end: 20010208
  9. EUPHYLONG [Concomitant]
     Dosage: 625 MG, UNKNOWN
     Route: 048
     Dates: end: 20010208
  10. MOVICOL                            /01625101/ [Concomitant]
     Dosage: 1 DF, UNKNOWN
     Dates: end: 20010208
  11. ATROVENT [Concomitant]
     Dosage: 2 DF, UNKNOWN
     Dates: end: 20010208
  12. MUNOBAL [Concomitant]
     Dosage: 5 MG, UNKNOWN
     Dates: end: 20010208
  13. CAPTOPRIL [Concomitant]
     Dosage: 50 MG, UNKNOWN
     Dates: end: 20010208
  14. TRAMAL [Concomitant]
     Dosage: 1.5 DF, UNKNOWN
     Dates: end: 20010208

REACTIONS (6)
  - Bronchopneumonia [Fatal]
  - Sudden cardiac death [Fatal]
  - Suicidal ideation [Unknown]
  - Depression [Unknown]
  - Obsessive thoughts [Unknown]
  - General physical health deterioration [Unknown]
